FAERS Safety Report 9713859 (Version 1)
Quarter: 2013Q4

REPORT INFORMATION
  Report Type: Spontaneous
  Country: US (occurrence: US)
  Receive Date: 20131126
  Receipt Date: 20131126
  Transmission Date: 20140711
  Serious: Yes (Hospitalization)
  Sender: FDA-Public Use
  Company Number: US-GLAXOSMITHKLINE-A1051186A

PATIENT
  Age: 37 Year
  Sex: Female

DRUGS (2)
  1. VENTOLIN [Suspect]
     Indication: ASTHMA
     Dosage: 90MCG UNKNOWN
     Route: 065
     Dates: start: 20130930
  2. ADVAIR [Suspect]
     Indication: ASTHMA
     Route: 065
     Dates: start: 20130930

REACTIONS (1)
  - Asthma [Unknown]
